FAERS Safety Report 9505862 (Version 1)
Quarter: 2013Q1

REPORT INFORMATION
  Report Type: Spontaneous
  Country: US (occurrence: None)
  Receive Date: 20130219
  Receipt Date: 20130219
  Transmission Date: 20140127
  Serious: Yes (Hospitalization)
  Sender: FDA-Public Use
  Company Number: 1207USA009885

PATIENT
  Sex: 0

DRUGS (9)
  1. PEPCID [Suspect]
     Route: 048
  2. VANCOMYCIN (VANCOMYCIN) [Suspect]
     Route: 042
  3. LIQUAEMIN [Suspect]
  4. NITRO-DUR [Suspect]
  5. ASPIRIN (ASPIRIN) [Suspect]
  6. PIPERACILLIN SODIUM (+) TAZOBACTAM SODIUM [Suspect]
  7. ZOCOR (SIMVASTATIN) [Suspect]
     Route: 048
  8. MEROPENEM (MEROPENEM) [Suspect]
  9. CEFEPIME (CEFEPIME) [Suspect]

REACTIONS (1)
  - Thrombocytopenia [None]
